FAERS Safety Report 10387332 (Version 2)
Quarter: 2015Q1

REPORT INFORMATION
  Report Type: Spontaneous
  Country: US (occurrence: US)
  Receive Date: 20140815
  Receipt Date: 20150305
  Transmission Date: 20150720
  Serious: Yes (Other)
  Sender: FDA-Public Use
  Company Number: US-PFIZER INC-2014226257

PATIENT
  Age: 59 Year
  Sex: Female
  Weight: 91 kg

DRUGS (7)
  1. BUSPIRONE [Concomitant]
     Active Substance: BUSPIRONE HYDROCHLORIDE
     Dosage: UNK
  2. FLEXERIL [Concomitant]
     Active Substance: CYCLOBENZAPRINE HYDROCHLORIDE
     Dosage: UNK
  3. VISTARIL [Concomitant]
     Active Substance: HYDROXYZINE PAMOATE
     Dosage: UNK
  4. EFFEXOR [Concomitant]
     Active Substance: VENLAFAXINE HYDROCHLORIDE
     Indication: DEPRESSION
     Dosage: UNK
  5. LYRICA [Suspect]
     Active Substance: PREGABALIN
     Indication: FIBROMYALGIA
     Dosage: 150 MG, 2X/DAY
     Route: 048
     Dates: start: 2012, end: 20140501
  6. MELOXICAM. [Concomitant]
     Active Substance: MELOXICAM
     Dosage: UNK
  7. LISINOPRIL AND HYDROCHLOROTHIAZIDE [Concomitant]
     Active Substance: HYDROCHLOROTHIAZIDE\LISINOPRIL
     Dosage: UNK

REACTIONS (21)
  - Weight increased [Unknown]
  - Mental impairment [Unknown]
  - Bacterial infection [Unknown]
  - Malaise [Unknown]
  - Muscle spasms [Unknown]
  - Foot deformity [Not Recovered/Not Resolved]
  - Joint stiffness [Unknown]
  - Restless legs syndrome [Unknown]
  - Pain [Unknown]
  - Agitation [Unknown]
  - Palpitations [Unknown]
  - Dry mouth [Unknown]
  - Fatigue [Unknown]
  - Vomiting [Unknown]
  - Photophobia [Unknown]
  - Activities of daily living impaired [Unknown]
  - Nerve compression [Not Recovered/Not Resolved]
  - Visual impairment [Not Recovered/Not Resolved]
  - Limb discomfort [Unknown]
  - Feeling of body temperature change [Unknown]
  - Withdrawal syndrome [Unknown]

NARRATIVE: CASE EVENT DATE: 2014
